FAERS Safety Report 16628766 (Version 2)
Quarter: 2019Q3

REPORT INFORMATION
  Report Type: Spontaneous
  Country: US (occurrence: US)
  Receive Date: 20190725
  Receipt Date: 20190821
  Transmission Date: 20191004
  Serious: Yes (Other)
  Sender: FDA-Public Use
  Company Number: US-BAYER-2019-139475

PATIENT
  Age: 22 Year
  Sex: Female
  Weight: 129.25 kg

DRUGS (2)
  1. MIRENA [Suspect]
     Active Substance: LEVONORGESTREL
     Indication: CONTRACEPTION
     Dosage: 20 MCG/24HR, CONT
     Route: 015
     Dates: start: 20190424, end: 20190603
  2. MIRENA [Suspect]
     Active Substance: LEVONORGESTREL
     Indication: CONTRACEPTION

REACTIONS (4)
  - Pain [None]
  - Abdominal pain [None]
  - Device dislocation [Recovered/Resolved]
  - Cervical dysplasia [None]

NARRATIVE: CASE EVENT DATE: 2019
